FAERS Safety Report 8056002-X (Version None)
Quarter: 2011Q4

REPORT INFORMATION
  Report Type: 
  Country: None (occurrence: None)
  Receive Date: 20111219
  Receipt Date: 20110517
  Transmission Date: 20120403
  Serious: Yes (Hospitalization)
  Sender: FDA-Public Use
  Company Number: WAES 1105USA02767

PATIENT
  Age: 47 Year
  Sex: Male

DRUGS (10)
  1. LIPITOR [Concomitant]
  2. TRAZODONE HYDROCHLORIDE [Concomitant]
  3. JANUVIA [Suspect]
     Indication: TYPE 2 DIABETES MELLITUS
     Dosage: 100 MG/HS/PO
     Route: 048
     Dates: start: 20110126, end: 20110301
  4. TRILIPIX [Concomitant]
  5. ZALEPLON [Concomitant]
  6. PRILOSEC [Concomitant]
  7. AMLODIPINE [Concomitant]
  8. LISINOPRIL [Concomitant]
  9. LOVAZA [Concomitant]
  10. VICODIN [Concomitant]

REACTIONS (1)
  - PANCREATITIS [None]
